FAERS Safety Report 19099781 (Version 2)
Quarter: 2021Q2

REPORT INFORMATION
  Report Type: Spontaneous
  Country: US (occurrence: US)
  Receive Date: 20210407
  Receipt Date: 20210414
  Transmission Date: 20210717
  Serious: Yes (Hospitalization, Other)
  Sender: FDA-Public Use
  Company Number: US-DRREDDYS-USA/USA/21/0133860

PATIENT
  Age: 11 Month
  Sex: Female

DRUGS (5)
  1. TACROLIMUS. [Suspect]
     Active Substance: TACROLIMUS
     Indication: PROPHYLAXIS
     Dosage: 1.2MG TWICE DAILY
  2. TACROLIMUS. [Interacting]
     Active Substance: TACROLIMUS
     Dosage: DOSAGE WAS INCREASED TO 1.4 MG TWICE DAILY
  3. VORICONAZOLE. [Interacting]
     Active Substance: VORICONAZOLE
     Indication: PULMONARY MASS
  4. TACROLIMUS. [Interacting]
     Active Substance: TACROLIMUS
     Dosage: INCREASED TO 2MG TWICE DAILY
  5. VORICONAZOLE. [Interacting]
     Active Substance: VORICONAZOLE
     Indication: PYREXIA

REACTIONS (4)
  - Anticoagulation drug level above therapeutic [Recovering/Resolving]
  - Toxicity to various agents [Recovering/Resolving]
  - Septic shock [Recovering/Resolving]
  - Drug interaction [Recovering/Resolving]
